FAERS Safety Report 8554876-7 (Version None)
Quarter: 2012Q3

REPORT INFORMATION
  Report Type: 
  Country: None (occurrence: None)
  Receive Date: 20120731
  Receipt Date: 20120726
  Transmission Date: 20120928
  Serious: Yes (Other)
  Sender: FDA-Public Use
  Company Number: US-PFIZER INC-2012181985

PATIENT
  Sex: Male

DRUGS (1)
  1. LYRICA [Suspect]
     Dosage: 75 MG, UNK

REACTIONS (6)
  - PARAESTHESIA [None]
  - ARTHRALGIA [None]
  - BACK DISORDER [None]
  - PAIN IN EXTREMITY [None]
  - SPINAL CORD DISORDER [None]
  - HYPOAESTHESIA [None]
